FAERS Safety Report 5175251-1 (Version None)
Quarter: 2006Q4

REPORT INFORMATION
  Report Type: 
  Country: None (occurrence: None)
  Receive Date: 20061211
  Receipt Date: 20061211
  Transmission Date: 20070319
  Serious: No
  Sender: FDA-Public Use
  Company Number: None

PATIENT
  Age: 58 Year
  Sex: Male
  Weight: 90.2658 kg

DRUGS (1)
  1. ADALIMUMAB 40 MG UNDER THE SKIN ONCE WEEKLY [Suspect]
     Indication: PSORIATIC ARTHROPATHY
     Dosage: 40 MG WEEKLY SC
     Route: 058
     Dates: end: 20041006

REACTIONS (3)
  - DISSEMINATED TUBERCULOSIS [None]
  - MENINGITIS TUBERCULOUS [None]
  - MENTAL STATUS CHANGES [None]
